FAERS Safety Report 6984084-2 (Version None)
Quarter: 2010Q3

REPORT INFORMATION
  Report Type: 
  Country: None (occurrence: None)
  Receive Date: 20100915
  Receipt Date: 20090515
  Transmission Date: 20110219
  Serious: No
  Sender: FDA-Public Use
  Company Number: US-WYE-H09380209

PATIENT
  Age: 37 Year
  Sex: Female
  Weight: 54.48 kg

DRUGS (1)
  1. ADVIL LIQUI-GELS [Suspect]
     Indication: HEADACHE
     Dosage: 2 TABLETS X 1
     Route: 048
     Dates: start: 20090514, end: 20090514

REACTIONS (3)
  - EYELIDS PRURITUS [None]
  - OEDEMA PERIPHERAL [None]
  - SWELLING FACE [None]
